FAERS Safety Report 17134015 (Version 1)
Quarter: 2019Q4

REPORT INFORMATION
  Report Type: Spontaneous
  Country: US (occurrence: US)
  Receive Date: 20191210
  Receipt Date: 20191210
  Transmission Date: 20200122
  Serious: Yes (Hospitalization)
  Sender: FDA-Public Use
  Company Number: US-ACCORD-164816

PATIENT
  Age: 71 Year
  Sex: Female

DRUGS (1)
  1. NALTREXONE/NALTREXONE HYDROCHLORIDE [Suspect]
     Active Substance: NALTREXONE
     Indication: BENIGN FAMILIAL PEMPHIGUS
     Dosage: 1.5-3 MG?MAINTAINED OVER TWO DAYS
     Route: 048

REACTIONS (7)
  - Anxiety [Unknown]
  - Drug intolerance [Unknown]
  - Pain [Recovering/Resolving]
  - Tachycardia [Unknown]
  - Off label use [Unknown]
  - Tachypnoea [Unknown]
  - Dizziness [Unknown]
